FAERS Safety Report 4305411-0 (Version None)
Quarter: 2004Q1

REPORT INFORMATION
  Report Type: 
  Country: None (occurrence: None)
  Receive Date: 20040226
  Receipt Date: 20031022
  Transmission Date: 20041129
  Serious: Yes (Other)
  Sender: FDA-Public Use
  Company Number: US-BRISTOL-MYERS SQUIBB COMPANY-12418190

PATIENT
  Age: 49 Year
  Sex: Female
  Weight: 82 kg

DRUGS (5)
  1. TAXOL [Suspect]
     Indication: BREAST CANCER
     Dosage: INITIAL DOSE: AUG-2003, DISCONTINUED: 23-OCT-2003  TREATMENT CYCLE: 3 WEEKS ON, 1 WEEK OFF
     Route: 042
     Dates: start: 20030901, end: 20030901
  2. ADVIL [Concomitant]
     Indication: PAIN
  3. MULTI-VITAMIN [Concomitant]
  4. HYDROXYZINE [Concomitant]
     Indication: PRURITUS
  5. HYDROXYZINE [Concomitant]
     Indication: INSOMNIA

REACTIONS (2)
  - DIZZINESS [None]
  - NEUROPATHY PERIPHERAL [None]
